FAERS Safety Report 5410917-7 (Version None)
Quarter: 2007Q3

REPORT INFORMATION
  Report Type: 
  Country: None (occurrence: None)
  Receive Date: 20070809
  Receipt Date: 20070809
  Transmission Date: 20080115
  Serious: Yes (Other)
  Sender: FDA-Public Use
  Company Number: None

PATIENT
  Sex: Female
  Weight: 68.0396 kg

DRUGS (2)
  1. AMBIEN [Suspect]
     Indication: INSOMNIA
     Dosage: 1 TABLET AT NIGHT PO
     Route: 048
     Dates: start: 20070708, end: 20070714
  2. AMBIEN [Suspect]
     Indication: INSOMNIA
     Dosage: 1 TABLET AT NIGHT PO
     Route: 048
     Dates: start: 20070730, end: 20070805

REACTIONS (2)
  - AMNESIA [None]
  - NIGHTMARE [None]
